FAERS Safety Report 4894855-4 (Version None)
Quarter: 2006Q1

REPORT INFORMATION
  Report Type: 
  Country: None (occurrence: None)
  Receive Date: 20060127
  Receipt Date: 20060127
  Transmission Date: 20060701
  Serious: Yes (Hospitalization)
  Sender: FDA-Public Use
  Company Number: None

PATIENT
  Sex: Male
  Weight: 110.4 kg

DRUGS (9)
  1. ANASTROZOLE [Suspect]
     Indication: HYPOGONADISM
     Dosage: 1 MG PO QD
     Route: 048
     Dates: start: 20050811, end: 20060126
  2. HYDROCHLOROTHIAZIDE [Concomitant]
  3. TOPROL [Concomitant]
  4. ZOLOFT [Concomitant]
  5. PROTONIX [Concomitant]
  6. COLAZAL [Concomitant]
  7. FOLATE [Concomitant]
  8. ASPIRIN [Concomitant]
  9. CALCIUM GLUCONATE [Concomitant]

REACTIONS (3)
  - ATRIAL FIBRILLATION [None]
  - PAIN IN EXTREMITY [None]
  - PULMONARY EMBOLISM [None]
